FAERS Safety Report 7744792-2 (Version None)
Quarter: 2011Q3

REPORT INFORMATION
  Report Type: 
  Country: None (occurrence: None)
  Receive Date: 20110912
  Receipt Date: 20110912
  Transmission Date: 20111222
  Serious: Yes (Life-Threatening)
  Sender: FDA-Public Use
  Company Number: None

PATIENT
  Age: 72 Year
  Sex: Female
  Weight: 30.39 kg

DRUGS (2)
  1. BACMIN CAPS [Suspect]
     Indication: DECREASED APPETITE
     Dosage: 1 A DAY
     Dates: start: 20110901, end: 20110904
  2. BACMIN CAPS [Suspect]
     Indication: FATIGUE
     Dosage: 1 A DAY
     Dates: start: 20110901, end: 20110904

REACTIONS (5)
  - ABDOMINAL PAIN UPPER [None]
  - POISONING [None]
  - WEIGHT DECREASED [None]
  - NAUSEA [None]
  - OROPHARYNGEAL PAIN [None]
